FAERS Safety Report 8580772 (Version 2)
Quarter: 2012Q4

REPORT INFORMATION
  Report Type: 
  Country: BR (occurrence: BR)
  Receive Date: 20120525
  Receipt Date: 20121010
  Transmission Date: 20130627
  Serious: Yes (Other)
  Sender: FDA-Public Use
  Company Number: BR-ROCHE-1068794

PATIENT
  Sex: Female
  Weight: 59 kg

DRUGS (5)
  1. ROACUTAN [Suspect]
     Indication: ACNE
     Dosage: daily after lunch time
     Route: 048
     Dates: start: 200912, end: 201005
  2. ROACUTAN [Suspect]
     Dosage: 2 CAPSULES AFTER LUNCH TIME
     Route: 048
  3. ROACUTAN [Suspect]
     Dosage: 6 capsules taken
     Route: 065
     Dates: start: 20120327, end: 20120408
  4. ROACUTAN [Suspect]
     Route: 065
     Dates: start: 20120420
  5. DIANE-35 [Concomitant]

REACTIONS (2)
  - Abortion spontaneous [Unknown]
  - Pregnancy [Unknown]
